FAERS Safety Report 4471392-2 (Version None)
Quarter: 2004Q4

REPORT INFORMATION
  Report Type: 
  Country: None (occurrence: None)
  Receive Date: 20041012
  Receipt Date: 20041004
  Transmission Date: 20050328
  Serious: Yes (Hospitalization)
  Sender: FDA-Public Use
  Company Number: US-BRISTOL-MYERS SQUIBB COMPANY-12721056

PATIENT
  Age: 53 Year
  Sex: Male

DRUGS (4)
  1. TRAZODONE HCL [Suspect]
  2. FLUOXETINE [Interacting]
     Indication: DEPRESSION
  3. TRAMADOL HCL [Interacting]
  4. CLONAZEPAM [Concomitant]

REACTIONS (7)
  - DRUG INTERACTION [None]
  - GASTROINTESTINAL DISORDER [None]
  - HALLUCINATION, VISUAL [None]
  - OEDEMA [None]
  - PETECHIAE [None]
  - SEROTONIN SYNDROME [None]
  - TACHYCARDIA [None]
